FAERS Safety Report 19503838 (Version 1)
Quarter: 2021Q3

REPORT INFORMATION
  Report Type: Report from Study
  Country: CZ (occurrence: CZ)
  Receive Date: 20210707
  Receipt Date: 20210707
  Transmission Date: 20211014
  Serious: Yes (Other)
  Sender: FDA-Public Use
  Company Number: CZ-MYLANLABS-2021M1013890

PATIENT
  Age: 51 Year
  Sex: Female

DRUGS (3)
  1. LEFLUNOMID [Concomitant]
     Active Substance: LEFLUNOMIDE
     Dosage: 20 MILLIGRAM, QD
     Dates: start: 2012, end: 20210303
  2. HULIO [Suspect]
     Active Substance: ADALIMUMAB-FKJP
     Indication: RHEUMATOID ARTHRITIS
     Dosage: 40 MILLIGRAM, BIMONTHLY
     Route: 058
     Dates: start: 20201201, end: 20210209
  3. METHYLPREDNISOLON                  /00049601/ [Concomitant]
     Active Substance: METHYLPREDNISOLONE
     Dosage: 8 MILLIGRAM, QD
     Dates: start: 20201201

REACTIONS (3)
  - Osteomyelitis [Recovering/Resolving]
  - Infection [Recovering/Resolving]
  - Inflammation [Unknown]

NARRATIVE: CASE EVENT DATE: 202102
